FAERS Safety Report 5700975-4 (Version None)
Quarter: 2008Q2

REPORT INFORMATION
  Report Type: 
  Country: None (occurrence: None)
  Receive Date: 20080410
  Receipt Date: 20080403
  Transmission Date: 20081010
  Serious: Yes (Hospitalization)
  Sender: FDA-Public Use
  Company Number: DE-ROCHE-556763

PATIENT
  Sex: Female
  Weight: 65 kg

DRUGS (7)
  1. CAPECITABINE [Suspect]
     Indication: BREAST CANCER METASTATIC
     Route: 065
     Dates: start: 20080219, end: 20080226
  2. EPIRUBICIN [Suspect]
     Indication: BREAST CANCER METASTATIC
     Route: 042
     Dates: start: 20071214, end: 20080111
  3. CYCLOPHOSPHAMIDE [Suspect]
     Indication: BREAST CANCER METASTATIC
     Route: 042
     Dates: start: 20071214, end: 20071228
  4. PACLITAXEL [Suspect]
     Indication: BREAST CANCER METASTATIC
     Route: 065
     Dates: start: 20080219, end: 20080226
  5. KEVATRIL [Concomitant]
     Dates: start: 20080226, end: 20080226
  6. TAVEGIL [Concomitant]
     Dates: start: 20080226, end: 20080226
  7. RANITIDINE HCL [Concomitant]
     Dates: start: 20080226, end: 20080226

REACTIONS (5)
  - DIARRHOEA [None]
  - GENERAL PHYSICAL HEALTH DETERIORATION [None]
  - HYPERSENSITIVITY [None]
  - STOMATITIS [None]
  - URTICARIA [None]
